FAERS Safety Report 4654782-4 (Version None)
Quarter: 2005Q2

REPORT INFORMATION
  Report Type: 
  Country: None (occurrence: None)
  Receive Date: 20050504
  Receipt Date: 20030420
  Transmission Date: 20051028
  Serious: Yes (Hospitalization)
  Sender: FDA-Public Use
  Company Number: 2003149003FR

PATIENT
  Age: 90 Year
  Sex: Male
  Weight: 47.9906 kg

DRUGS (6)
  1. XANAX [Suspect]
     Indication: ILL-DEFINED DISORDER
     Dosage: 0.25 MG (1 IN 1 D) ORAL
     Route: 048
     Dates: start: 20021226, end: 20030110
  2. AMLODIPINE BESYLATE [Suspect]
     Indication: ILL-DEFINED DISORDER
     Dosage: ORAL
     Route: 048
     Dates: start: 20030102, end: 20030116
  3. MOLSIDOMINE (MOLSIDOMINE) [Suspect]
     Indication: ILL-DEFINED DISORDER
     Dosage: ORAL
     Route: 048
     Dates: start: 20021226, end: 20030116
  4. TRIMETAZIDINE HYDROCHLORIDE (TRIMETAZIDINE HYDROCHLORIDE) [Suspect]
     Indication: ILL-DEFINED DISORDER
     Dosage: ORAL
     Route: 048
     Dates: start: 20030102, end: 20030116
  5. OMEPRAZOLE [Suspect]
     Indication: ILL-DEFINED DISORDER
     Dosage: 20 MG (1 IN 1 D) ORAL
     Route: 048
     Dates: start: 20030102, end: 20030109
  6. ACEBUTOLOL HCL [Suspect]
     Indication: ILL-DEFINED DISORDER
     Dosage: 100 MG (1 IN 1 D) ORAL
     Route: 048
     Dates: start: 20021226

REACTIONS (1)
  - NEUTROPENIA [None]
